FAERS Safety Report 15423830 (Version 2)
Quarter: 2019Q1

REPORT INFORMATION
  Report Type: Report from Study
  Country: JP (occurrence: JP)
  Receive Date: 20180925
  Receipt Date: 20190130
  Transmission Date: 20190417
  Serious: Yes (Hospitalization, Other)
  Sender: FDA-Public Use
  Company Number: JP-INCYTE CORPORATION-2018IN009726

PATIENT

DRUGS (3)
  1. JAKAVI [Suspect]
     Active Substance: RUXOLITINIB
     Dosage: 15 MG, BID
     Route: 048
     Dates: start: 20170428
  2. JAKAVI [Suspect]
     Active Substance: RUXOLITINIB
     Indication: POLYCYTHAEMIA VERA
     Dosage: 10 MG, BID
     Route: 048
     Dates: start: 20170407, end: 20170427
  3. LIXIANA [Suspect]
     Active Substance: EDOXABAN TOSYLATE
     Indication: ATRIAL FIBRILLATION
     Dosage: 60 MG, UNK
     Route: 048
     Dates: start: 20170818, end: 20180224

REACTIONS (9)
  - Chest discomfort [Recovered/Resolved]
  - Headache [Unknown]
  - Atrial fibrillation [Recovered/Resolved]
  - Blood pressure systolic increased [Unknown]
  - Dizziness [Unknown]
  - Muscular weakness [Unknown]
  - Tachycardia [Unknown]
  - Eye haematoma [Unknown]
  - Thalamus haemorrhage [Recovering/Resolving]

NARRATIVE: CASE EVENT DATE: 20170818
